FAERS Safety Report 12239964 (Version 2)
Quarter: 2016Q2

REPORT INFORMATION
  Report Type: Spontaneous
  Country: US (occurrence: US)
  Receive Date: 20160405
  Receipt Date: 20160411
  Transmission Date: 20160815
  Serious: No
  Sender: FDA-Public Use
  Company Number: PHHY2016US043626

PATIENT
  Sex: Male

DRUGS (12)
  1. TIZANIDINE SANDOZ [Suspect]
     Active Substance: TIZANIDINE
     Indication: PRODUCT USED FOR UNKNOWN INDICATION
     Dosage: 4 MG, QD( ONCE AT NIGHT)
     Route: 048
  2. MAGNESIUM HYDROXIDE. [Suspect]
     Active Substance: MAGNESIUM HYDROXIDE
     Indication: PRODUCT USED FOR UNKNOWN INDICATION
     Dosage: UNK
     Route: 048
  3. CELEBREX [Suspect]
     Active Substance: CELECOXIB
     Indication: PRODUCT USED FOR UNKNOWN INDICATION
     Dosage: 100 MG, QD
     Route: 048
  4. LIDOCAINE. [Suspect]
     Active Substance: LIDOCAINE
     Indication: PRODUCT USED FOR UNKNOWN INDICATION
     Dosage: 700 MG, UNK (700 MG/PATCH)
     Route: 062
  5. COLACE [Suspect]
     Active Substance: DOCUSATE SODIUM
     Indication: PRODUCT USED FOR UNKNOWN INDICATION
     Dosage: 100 MG, UNK( AS NEEDED)
     Route: 048
  6. LIORESAL [Suspect]
     Active Substance: BACLOFEN
     Dosage: 20 MG, TID
     Route: 048
  7. SODIUM PHOSPHATE AND SODIUM BIPHOSPHATE [Suspect]
     Active Substance: SODIUM PHOSPHATE\SODIUM PHOSPHATE, MONOBASIC, UNSPECIFIED FORM
     Indication: CONSTIPATION
     Dosage: 133 ML, QD
     Route: 054
  8. LIORESAL [Suspect]
     Active Substance: BACLOFEN
     Indication: PRODUCT USED FOR UNKNOWN INDICATION
     Dosage: 10 MG, QD
     Route: 048
  9. LIORESAL [Suspect]
     Active Substance: BACLOFEN
     Indication: MUSCLE SPASTICITY
     Dosage: 304.9 UG, QD
     Route: 037
     Dates: start: 20160322
  10. MIRALAX [Suspect]
     Active Substance: POLYETHYLENE GLYCOL 3350
     Indication: PRODUCT USED FOR UNKNOWN INDICATION
     Dosage: 17 G, UNK (17 G/DOSE; 1-2 CAPSULES AS NEEDED)
     Route: 048
  11. TYLENOL [Suspect]
     Active Substance: ACETAMINOPHEN
     Indication: PRODUCT USED FOR UNKNOWN INDICATION
     Dosage: 500MG, (2 TABLETS PO Q6H AS NEEDED)
     Route: 048
  12. SENNOSIDE UNKNOWN MANUFACTURER [Suspect]
     Active Substance: SENNOSIDES
     Indication: PRODUCT USED FOR UNKNOWN INDICATION
     Dosage: 15 MG, UNK ( AS NEEDED)
     Route: 048

REACTIONS (18)
  - Musculoskeletal stiffness [Unknown]
  - Device alarm issue [None]
  - Movement disorder [Unknown]
  - Gait disturbance [Unknown]
  - Hypertonia [Unknown]
  - Pain [Unknown]
  - Muscle spasms [Unknown]
  - Muscle spasticity [Unknown]
  - Anal incontinence [Unknown]
  - Pelvic floor dyssynergia [Unknown]
  - Defaecation urgency [Unknown]
  - Performance status decreased [Unknown]
  - Diplegia [Unknown]
  - Fall [None]
  - Constipation [Unknown]
  - Muscle tightness [Unknown]
  - Faecaloma [Unknown]
  - Nasopharyngitis [Unknown]
